FAERS Safety Report 7105995-3 (Version None)
Quarter: 2010Q4

REPORT INFORMATION
  Report Type: 
  Country: None (occurrence: None)
  Receive Date: 20101116
  Receipt Date: 20101110
  Transmission Date: 20110411
  Serious: Yes (Other)
  Sender: FDA-Public Use
  Company Number: FR-BRISTOL-MYERS SQUIBB COMPANY-14642565

PATIENT
  Age: 18 Year
  Sex: Female

DRUGS (6)
  1. SUSTIVA [Interacting]
     Indication: HIV INFECTION
     Route: 048
     Dates: start: 20080724
  2. REYATAZ [Suspect]
  3. IMPLANON [Interacting]
     Indication: HIV INFECTION
     Dates: start: 20080215
  4. TRUVADA [Suspect]
     Dosage: 1DF= 1 TABLET
     Route: 048
     Dates: start: 20080727
  5. NORVIR [Suspect]
  6. VALACYCLOVIR HYDROCHLORIDE [Concomitant]
     Route: 048
     Dates: start: 20080918

REACTIONS (4)
  - CAESAREAN SECTION [None]
  - DRUG INTERACTION [None]
  - NORMAL NEWBORN [None]
  - PREGNANCY [None]
